FAERS Safety Report 8134171-0 (Version None)
Quarter: 2012Q1

REPORT INFORMATION
  Report Type: 
  Country: None (occurrence: None)
  Receive Date: 20120213
  Receipt Date: 20120213
  Transmission Date: 20120608
  Serious: Yes (Hospitalization)
  Sender: FDA-Public Use
  Company Number: None

PATIENT
  Sex: Female

DRUGS (17)
  1. AMIODARONE HCL [Concomitant]
  2. AZASITE [Concomitant]
  3. FENOFIBRATE [Concomitant]
  4. ISOSORBIDE MONONITRATE [Concomitant]
  5. MULTI-VITAMIN [Concomitant]
  6. BROMDAY [Concomitant]
  7. LIPITOR [Concomitant]
  8. COMBIVENT [Concomitant]
  9. NITROGLYCERIN [Concomitant]
  10. ADVAIR DISKUS 100/50 [Concomitant]
  11. OZURDEX [Suspect]
     Indication: RETINAL VEIN OCCLUSION
     Dosage: 0.7 MG Q16W IVT
     Dates: start: 20111223
  12. HYDROCHLOROTHIAZIDE [Concomitant]
  13. LEXAPRO [Concomitant]
  14. LORAZEPAM [Concomitant]
  15. SPIRIVA [Concomitant]
  16. CAPTOPRIL [Concomitant]
  17. ASPIRIN [Concomitant]

REACTIONS (1)
  - CHOLELITHIASIS [None]
